FAERS Safety Report 16582935 (Version 1)
Quarter: 2019Q3

REPORT INFORMATION
  Report Type: Spontaneous
  Country: US (occurrence: US)
  Receive Date: 20190603
  Receipt Date: 20190603
  Transmission Date: 20191004
  Serious: No
  Sender: FDA-Public Use
  Company Number: None

PATIENT

DRUGS (2)
  1. METOPROLOL TARTRATE METOPROLOL [Suspect]
     Active Substance: METOPROLOL TARTRATE
     Route: 042
  2. METOPROLOL TARTRATE METOPROLOL [Suspect]
     Active Substance: METOPROLOL TARTRATE
     Route: 042

REACTIONS (2)
  - Wrong dose [None]
  - Intercepted product administration error [None]
